FAERS Safety Report 19183956 (Version 1)
Quarter: 2021Q2

REPORT INFORMATION
  Report Type: Spontaneous
  Country: US (occurrence: US)
  Receive Date: 20210427
  Receipt Date: 20210427
  Transmission Date: 20210717
  Serious: No
  Sender: FDA-Public Use
  Company Number: US-BEH-2021130622

PATIENT
  Sex: Female

DRUGS (13)
  1. DILTIAZEM HCL [Concomitant]
     Active Substance: DILTIAZEM HYDROCHLORIDE
  2. MULTIVITAMIN [ASCORBIC ACID;CALCIUM PANTOTHENATE;CYANOCOBALAMIN;ERGOCA [Concomitant]
  3. BUMETANIDE. [Concomitant]
     Active Substance: BUMETANIDE
  4. OMEPRAZOLE. [Concomitant]
     Active Substance: OMEPRAZOLE
  5. FENOFIBRATE. [Concomitant]
     Active Substance: FENOFIBRATE
  6. FLUTICASONE PROPIONATE. [Concomitant]
     Active Substance: FLUTICASONE PROPIONATE
  7. METOPROLOL SUCCINATE. [Concomitant]
     Active Substance: METOPROLOL SUCCINATE
  8. LEVOTHYROXINE SODIUM. [Concomitant]
     Active Substance: LEVOTHYROXINE SODIUM
  9. POTASSIUM [Concomitant]
     Active Substance: POTASSIUM
  10. DANAZOL. [Concomitant]
     Active Substance: DANAZOL
  11. HAEGARDA [Suspect]
     Active Substance: HUMAN C1-ESTERASE INHIBITOR
     Indication: PROPHYLAXIS
  12. VITAMIN D3 [Concomitant]
     Active Substance: CHOLECALCIFEROL
  13. HAEGARDA [Suspect]
     Active Substance: HUMAN C1-ESTERASE INHIBITOR
     Indication: HEREDITARY ANGIOEDEMA
     Dosage: 4000 INTERNATIONAL UNIT, BIW, (3 TO 4 DAYS APART)
     Route: 058

REACTIONS (1)
  - Insomnia [Unknown]
